FAERS Safety Report 11653285 (Version 1)
Quarter: 2015Q4

REPORT INFORMATION
  Report Type: Spontaneous
  Country: CN (occurrence: CN)
  Receive Date: 20151022
  Receipt Date: 20151022
  Transmission Date: 20160304
  Serious: Yes (Hospitalization)
  Sender: FDA-Public Use
  Company Number: CN-BAYER-2015-444465

PATIENT
  Age: 62 Year
  Sex: Female
  Weight: 52 kg

DRUGS (3)
  1. NEXAVAR [Suspect]
     Active Substance: SORAFENIB
     Indication: HEPATIC CANCER
     Dosage: 400 MG, BID
     Route: 048
     Dates: start: 20141116, end: 20150314
  2. NOVOLIN 30R [Concomitant]
     Active Substance: INSULIN HUMAN
     Indication: DIABETES MELLITUS
  3. SEBIVO [Concomitant]
     Active Substance: TELBIVUDINE
     Indication: CHRONIC HEPATITIS B
     Dosage: 0.6 G, QD
     Route: 048
     Dates: start: 20141116, end: 20150402

REACTIONS (3)
  - Hypovolaemic shock [Recovered/Resolved]
  - Vomiting [Recovered/Resolved]
  - Diarrhoea [Recovered/Resolved]

NARRATIVE: CASE EVENT DATE: 20150312
